FAERS Safety Report 6108873-1 (Version None)
Quarter: 2009Q1

REPORT INFORMATION
  Report Type: 
  Country: None (occurrence: None)
  Receive Date: 20090306
  Receipt Date: 20081112
  Transmission Date: 20090719
  Serious: Yes (Disabling)
  Sender: FDA-Public Use
  Company Number: 2007EU000092

PATIENT
  Sex: Female
  Weight: 80 kg

DRUGS (10)
  1. PROGRAF [Suspect]
     Indication: LIVER TRANSPLANT
     Dosage: 2 MG, BID, ORAL; 3 MG, BID, ORAL; 6 MG, BID, ORAL; 3 MG, ORAL; 4 MG, BID, ORAL
     Route: 048
     Dates: start: 20060606, end: 20061227
  2. PROGRAF [Suspect]
     Indication: LIVER TRANSPLANT
     Dosage: 2 MG, BID, ORAL; 3 MG, BID, ORAL; 6 MG, BID, ORAL; 3 MG, ORAL; 4 MG, BID, ORAL
     Route: 048
     Dates: start: 20051212
  3. PROGRAF [Suspect]
     Indication: LIVER TRANSPLANT
     Dosage: 2 MG, BID, ORAL; 3 MG, BID, ORAL; 6 MG, BID, ORAL; 3 MG, ORAL; 4 MG, BID, ORAL
     Route: 048
     Dates: start: 20051222
  4. PROGRAF [Suspect]
     Indication: LIVER TRANSPLANT
     Dosage: 2 MG, BID, ORAL; 3 MG, BID, ORAL; 6 MG, BID, ORAL; 3 MG, ORAL; 4 MG, BID, ORAL
     Route: 048
     Dates: start: 20060101
  5. PROGRAF [Suspect]
     Indication: LIVER TRANSPLANT
     Dosage: 2 MG, BID, ORAL; 3 MG, BID, ORAL; 6 MG, BID, ORAL; 3 MG, ORAL; 4 MG, BID, ORAL
     Route: 048
     Dates: start: 20060109
  6. PROGRAF [Suspect]
     Indication: LIVER TRANSPLANT
     Dosage: 2 MG, BID, ORAL; 3 MG, BID, ORAL; 6 MG, BID, ORAL; 3 MG, ORAL; 4 MG, BID, ORAL
     Route: 048
     Dates: start: 20060221
  7. CELLCEPT [Concomitant]
  8. MYCOPHENOLIC ACID [Concomitant]
  9. PREDNISONE [Concomitant]
  10. RAPAMUNE [Concomitant]

REACTIONS (4)
  - CHONDROPATHY [None]
  - JOINT EFFUSION [None]
  - MUSCULAR WEAKNESS [None]
  - OEDEMA PERIPHERAL [None]
